FAERS Safety Report 15518778 (Version 1)
Quarter: 2018Q4

REPORT INFORMATION
  Report Type: Spontaneous
  Country: US (occurrence: US)
  Receive Date: 20181017
  Receipt Date: 20181017
  Transmission Date: 20190205
  Serious: No
  Sender: FDA-Public Use
  Company Number: US-SA-2018SA287517

PATIENT
  Sex: Female

DRUGS (2)
  1. PRALUENT [Suspect]
     Active Substance: ALIROCUMAB
     Dosage: 150 MG
     Dates: start: 201808
  2. PRALUENT [Suspect]
     Active Substance: ALIROCUMAB
     Dosage: 75 UNK

REACTIONS (1)
  - Pruritus [Recovered/Resolved]
